FAERS Safety Report 20581918 (Version 1)
Quarter: 2022Q1

REPORT INFORMATION
  Report Type: Spontaneous
  Country: US (occurrence: None)
  Receive Date: 20220310
  Receipt Date: 20220310
  Transmission Date: 20220423
  Serious: Yes (Life-Threatening, Hospitalization)
  Sender: FDA-Public Use
  Company Number: None

PATIENT
  Age: 62 Year
  Sex: Male
  Weight: 63 kg

DRUGS (3)
  1. FLUOXETINE HYDROCHLORIDE [Suspect]
     Active Substance: FLUOXETINE HYDROCHLORIDE
     Indication: Depression
     Dosage: 60 MG AM PO?
     Route: 048
     Dates: start: 20120801, end: 20200702
  2. FLUOXETINE HYDROCHLORIDE [Suspect]
     Active Substance: FLUOXETINE HYDROCHLORIDE
  3. EMTRICITABINE\TENOFOVIR ALAFENAMIDE FUMARATE [Suspect]
     Active Substance: EMTRICITABINE\TENOFOVIR ALAFENAMIDE FUMARATE
     Dosage: 1 TAB EVERY DAY PO?
     Route: 048
     Dates: start: 20160727, end: 20200702

REACTIONS (5)
  - Respiratory failure [None]
  - Respiratory distress [None]
  - Acute interstitial pneumonitis [None]
  - Pneumonitis [None]
  - Toxicity to various agents [None]

NARRATIVE: CASE EVENT DATE: 20200605
